FAERS Safety Report 7654826-1 (Version None)
Quarter: 2011Q3

REPORT INFORMATION
  Report Type: 
  Country: None (occurrence: None)
  Receive Date: 20110803
  Receipt Date: 20110803
  Transmission Date: 20111222
  Serious: Yes (Death)
  Sender: FDA-Public Use
  Company Number: None

PATIENT
  Sex: Female
  Weight: 68.1 kg

DRUGS (9)
  1. TEMSIROLIMUS [Suspect]
     Indication: DIFFUSE LARGE B-CELL LYMPHOMA
     Dosage: 25MG WEEKLY IV
     Route: 042
     Dates: start: 20110623
  2. TEMSIROLIMUS [Suspect]
     Indication: DIFFUSE LARGE B-CELL LYMPHOMA
     Dosage: 25MG WEEKLY IV
     Route: 042
     Dates: start: 20110707
  3. TEMSIROLIMUS [Suspect]
     Indication: DIFFUSE LARGE B-CELL LYMPHOMA
     Dosage: 25MG WEEKLY IV
     Route: 042
     Dates: start: 20110616
  4. VELCADE [Suspect]
     Indication: DIFFUSE LARGE B-CELL LYMPHOMA
     Dosage: 1.6MG/M2 WEEKLY IV
     Route: 042
     Dates: start: 20110623
  5. VELCADE [Suspect]
     Indication: DIFFUSE LARGE B-CELL LYMPHOMA
     Dosage: 1.6MG/M2 WEEKLY IV
     Route: 042
     Dates: start: 20110616
  6. VELCADE [Suspect]
     Indication: DIFFUSE LARGE B-CELL LYMPHOMA
     Dosage: 1.6MG/M2 WEEKLY IV
     Route: 042
     Dates: start: 20110707
  7. PROPHYLAXIS [Concomitant]
  8. CIPROFLAXACIN [Concomitant]
  9. ACYCLOVIR [Concomitant]

REACTIONS (1)
  - SEPSIS [None]
